FAERS Safety Report 9686000 (Version 1)
Quarter: 2013Q4

REPORT INFORMATION
  Report Type: Spontaneous
  Country: US (occurrence: US)
  Receive Date: 20131113
  Receipt Date: 20131113
  Transmission Date: 20140711
  Serious: No
  Sender: FDA-Public Use
  Company Number: US-ALLERGAN-1305833US

PATIENT
  Age: 73 Year
  Sex: Female

DRUGS (5)
  1. COMBIGAN[R] [Suspect]
     Indication: INTRAOCULAR PRESSURE INCREASED
     Dosage: 2 GTT, BID
     Route: 047
     Dates: start: 201304
  2. TRAVATAN [Suspect]
     Indication: INTRAOCULAR PRESSURE INCREASED
     Dosage: 2 GTT, QHS
     Route: 047
     Dates: start: 201304
  3. EYE DROP NOS [Suspect]
     Indication: HYPOAESTHESIA EYE
     Dosage: UNK
     Route: 047
     Dates: start: 20130418, end: 20130418
  4. EYE DROP NOS [Suspect]
     Indication: MYDRIASIS
     Dosage: UNK
     Route: 047
     Dates: start: 20130418, end: 20130418
  5. LOSARTAN [Concomitant]
     Indication: HYPERTENSION
     Dosage: UNK

REACTIONS (4)
  - Burning sensation [Unknown]
  - Burning sensation [Unknown]
  - Hyperaesthesia [Not Recovered/Not Resolved]
  - Photopsia [Recovering/Resolving]
